FAERS Safety Report 14124402 (Version 1)
Quarter: 2017Q4

REPORT INFORMATION
  Report Type: Spontaneous
  Country: US (occurrence: US)
  Receive Date: 20171025
  Receipt Date: 20171025
  Transmission Date: 20180321
  Serious: No
  Sender: FDA-Public Use
  Company Number: US-PFIZER INC-2016326935

PATIENT
  Age: 78 Year
  Sex: Female
  Weight: 117.4 kg

DRUGS (3)
  1. LYRICA [Suspect]
     Active Substance: PREGABALIN
     Indication: HYPERPARATHYROIDISM
     Dosage: 100 MG, TWICE DAILY (EVERY 12 HOURS)
     Route: 048
     Dates: start: 20170514
  2. TIMOLOL MALEATE. [Concomitant]
     Active Substance: TIMOLOL MALEATE
     Indication: GLAUCOMA
     Dosage: 1 GTT, 1X/DAY [1 DROP IN EACH EYE EVERY MORNING]
  3. LYRICA [Suspect]
     Active Substance: PREGABALIN
     Indication: FIBROMYALGIA
     Dosage: 75 MG, TWICE DAILY (TAKE 1 CAPSULE EVERY 12 HOURS)
     Route: 048
     Dates: start: 20160624

REACTIONS (3)
  - Memory impairment [Not Recovered/Not Resolved]
  - Fall [Unknown]
  - Condition aggravated [Not Recovered/Not Resolved]

NARRATIVE: CASE EVENT DATE: 2017
